FAERS Safety Report 10042221 (Version 3)
Quarter: 2014Q2

REPORT INFORMATION
  Report Type: Report from Study
  Country: GB (occurrence: GB)
  Receive Date: 20140327
  Receipt Date: 20140410
  Transmission Date: 20141212
  Serious: Yes (Death, Hospitalization)
  Sender: FDA-Public Use
  Company Number: GB-GLAXOSMITHKLINE-B0973002A

PATIENT
  Sex: Male
  Weight: 67.6 kg

DRUGS (9)
  1. PAZOPANIB [Suspect]
     Indication: BLADDER TRANSITIONAL CELL CARCINOMA
     Dosage: 800MG PER DAY
     Route: 048
     Dates: start: 20140218, end: 20140224
  2. RAMIPRIL [Concomitant]
     Indication: HYPERTENSION
     Dosage: 10MG PER DAY
     Route: 048
     Dates: start: 20091015
  3. SIMVASTATIN [Concomitant]
     Indication: BLOOD CHOLESTEROL
     Dosage: 30MG PER DAY
     Route: 048
     Dates: start: 20061031
  4. PARACETAMOL [Concomitant]
     Indication: PAIN
     Dosage: 500MG FOUR TIMES PER DAY
     Route: 048
     Dates: start: 20030430
  5. FRAGMIN [Concomitant]
     Indication: DEEP VEIN THROMBOSIS
     Dosage: 12500IU PER DAY
     Dates: start: 20130925
  6. VITAMIN B12 [Concomitant]
     Dosage: 1000MG PER DAY
     Route: 048
  7. TONIC [Concomitant]
     Dosage: 10ML PER DAY
     Route: 048
  8. CODEINE PHOSPHATE [Concomitant]
     Indication: PAIN
     Dosage: 30MG FOUR TIMES PER DAY
     Route: 048
     Dates: start: 20110308, end: 20140224
  9. LOPERAMIDE [Concomitant]
     Indication: CONSTIPATION
     Dosage: 4MG FOUR TIMES PER DAY
     Route: 048
     Dates: start: 20110228, end: 20140224

REACTIONS (7)
  - Diarrhoea [Not Recovered/Not Resolved]
  - Decreased appetite [Not Recovered/Not Resolved]
  - Nausea [Not Recovered/Not Resolved]
  - Blood creatinine increased [Not Recovered/Not Resolved]
  - Large intestine perforation [Fatal]
  - Sepsis [Fatal]
  - Renal failure chronic [Not Recovered/Not Resolved]
